FAERS Safety Report 5239855-X (Version None)
Quarter: 2007Q1

REPORT INFORMATION
  Report Type: 
  Country: None (occurrence: None)
  Receive Date: 20070216
  Receipt Date: 20070208
  Transmission Date: 20070707
  Serious: Yes (Hospitalization)
  Sender: FDA-Public Use
  Company Number: CA-BOEHRINGER INGELHEIM GMBH, GERMANY-2007-CN-00084CN

PATIENT
  Sex: Female

DRUGS (7)
  1. MICARDIS [Suspect]
     Dates: start: 20060620, end: 20061225
  2. ALTACE [Concomitant]
  3. METOPROLOL SUCCINATE [Concomitant]
  4. ASPIRIN [Concomitant]
  5. PLAVIX [Concomitant]
  6. CRESTOR [Concomitant]
  7. AVANDIA [Concomitant]

REACTIONS (1)
  - CHEST DISCOMFORT [None]
